FAERS Safety Report 7091783-3 (Version None)
Quarter: 2010Q4

REPORT INFORMATION
  Report Type: 
  Country: None (occurrence: None)
  Receive Date: 20101109
  Receipt Date: 20101101
  Transmission Date: 20110411
  Serious: Yes (Death, Hospitalization)
  Sender: FDA-Public Use
  Company Number: PHHY2010GB74952

PATIENT
  Age: 10 Year
  Sex: Male

DRUGS (5)
  1. ILARIS [Suspect]
     Indication: HISTIOCYTOSIS HAEMATOPHAGIC
     Dosage: 4 MG/KG, UNK
     Dates: start: 20100301, end: 20100903
  2. METHOTREXATE [Concomitant]
     Dosage: 12 MG/WEEKLY
  3. PREDNISOLONE [Concomitant]
     Dosage: 5 MG/DAILY
  4. CYCLOSPORINE [Concomitant]
     Dosage: UNK
  5. ETOPOSIDE [Concomitant]
     Dosage: UNK

REACTIONS (22)
  - ACUTE RESPIRATORY DISTRESS SYNDROME [None]
  - ARTHRALGIA [None]
  - BLOOD FIBRINOGEN DECREASED [None]
  - BLOOD LACTATE DEHYDROGENASE INCREASED [None]
  - BRAIN OEDEMA [None]
  - C-REACTIVE PROTEIN INCREASED [None]
  - CONVULSION [None]
  - ENCEPHALITIS [None]
  - FIBRIN D DIMER INCREASED [None]
  - HAEMOGLOBIN DECREASED [None]
  - HISTIOCYTOSIS HAEMATOPHAGIC [None]
  - INFLUENZA LIKE ILLNESS [None]
  - MALAISE [None]
  - PAIN [None]
  - PNEUMONIA [None]
  - PROTHROMBIN TIME PROLONGED [None]
  - PUPIL FIXED [None]
  - PYREXIA [None]
  - RASH [None]
  - RESPIRATORY DISORDER [None]
  - SERUM FERRITIN INCREASED [None]
  - VIRAL INFECTION [None]
